FAERS Safety Report 5858666-5 (Version None)
Quarter: 2008Q3

REPORT INFORMATION
  Report Type: 
  Country: None (occurrence: None)
  Receive Date: 20080826
  Receipt Date: 20080815
  Transmission Date: 20090109
  Serious: No
  Sender: FDA-Public Use
  Company Number: US-BOEHRINGER INGELHEIM GMBH, GERMANY-2008-BP-12892BP

PATIENT
  Age: 73 Year
  Sex: Female

DRUGS (7)
  1. ZANTAC 150 [Suspect]
     Indication: DYSPEPSIA
     Route: 048
  2. PENICILLIN [Suspect]
  3. CEPHALEXIN [Suspect]
  4. DILAUDID [Concomitant]
  5. CYMBALTA [Concomitant]
  6. NEXIUM [Concomitant]
  7. VALIUM [Concomitant]

REACTIONS (2)
  - DYSPEPSIA [None]
  - NAUSEA [None]
